FAERS Safety Report 21617928 (Version 1)
Quarter: 2022Q4

REPORT INFORMATION
  Report Type: Spontaneous
  Country: US (occurrence: US)
  Receive Date: 20221119
  Receipt Date: 20221119
  Transmission Date: 20230113
  Serious: No
  Sender: FDA-Public Use
  Company Number: US-AUROBINDO-AUR-APL-2022-008468

PATIENT
  Age: 73 Year
  Sex: Female
  Weight: 77 kg

DRUGS (3)
  1. PANTOPRAZOLE SODIUM [Suspect]
     Active Substance: PANTOPRAZOLE SODIUM
     Indication: Polyp
     Dosage: 40 MILLIGRAM, ONCE A DAY
     Route: 048
     Dates: start: 20220309, end: 20220309
  2. PANTOPRAZOLE SODIUM [Suspect]
     Active Substance: PANTOPRAZOLE SODIUM
     Indication: Gastrooesophageal reflux disease
  3. LEVOTHYROXINE SODIUM [Concomitant]
     Active Substance: LEVOTHYROXINE SODIUM
     Indication: Thyroid disorder
     Dosage: UNK
     Route: 065

REACTIONS (3)
  - Cough [Recovered/Resolved]
  - Pruritus [Recovered/Resolved]
  - Secretion discharge [Recovered/Resolved]

NARRATIVE: CASE EVENT DATE: 20220309
